FAERS Safety Report 8230187-4 (Version None)
Quarter: 2012Q1

REPORT INFORMATION
  Report Type: 
  Country: None (occurrence: None)
  Receive Date: 20120323
  Receipt Date: 20120321
  Transmission Date: 20120608
  Serious: No
  Sender: FDA-Public Use
  Company Number: US-PFIZER INC-2012073988

PATIENT
  Sex: Female
  Weight: 61.224 kg

DRUGS (2)
  1. LORATADINE AND PSEUDOEPHEDRINE SULFATE [Suspect]
     Indication: SINUS CONGESTION
     Dosage: UNK,
     Dates: start: 20120316
  2. LORATADINE AND PSEUDOEPHEDRINE SULFATE [Suspect]
     Indication: INTRAOCULAR PRESSURE TEST ABNORMAL

REACTIONS (2)
  - COUGH [None]
  - DRUG INEFFECTIVE [None]
